FAERS Safety Report 10145725 (Version 1)
Quarter: 2014Q2

REPORT INFORMATION
  Report Type: Spontaneous
  Country: ZA (occurrence: ZA)
  Receive Date: 20140501
  Receipt Date: 20140501
  Transmission Date: 20141212
  Serious: Yes (Other)
  Sender: FDA-Public Use
  Company Number: PHHY2014ZA052375

PATIENT
  Sex: Female

DRUGS (1)
  1. CO-EXFORGE [Suspect]
     Indication: HYPERTENSION
     Dosage: 1 DF (VALS 160 MG / AMLO 5 MG / HYDR 12.5 MG), DAILY

REACTIONS (2)
  - Atrioventricular block [Unknown]
  - Hot flush [Unknown]
